FAERS Safety Report 25938003 (Version 1)
Quarter: 2025Q4

REPORT INFORMATION
  Report Type: Spontaneous
  Country: CN (occurrence: CN)
  Receive Date: 20251018
  Receipt Date: 20251018
  Transmission Date: 20260118
  Serious: Yes (Other)
  Sender: MACLEODS
  Company Number: CN-MLMSERVICE-20251009-PI670174-00097-1

PATIENT

DRUGS (8)
  1. NYSTATIN [Suspect]
     Active Substance: NYSTATIN
     Indication: Candida infection
     Dosage: 1 X 10^6 [IU]
     Route: 048
     Dates: start: 20160330, end: 20160331
  2. CYCLOSPORINE [Suspect]
     Active Substance: CYCLOSPORINE
     Indication: Chronic cutaneous lupus erythematosus
     Route: 048
     Dates: start: 201512, end: 20160330
  3. CYCLOSPORINE [Suspect]
     Active Substance: CYCLOSPORINE
     Dosage: AT NIGHT
     Route: 048
     Dates: start: 201512, end: 20160330
  4. METHYLPREDNISOLONE [Concomitant]
     Active Substance: METHYLPREDNISOLONE
     Route: 048
     Dates: start: 201512
  5. LECITHIN [Concomitant]
     Active Substance: LECITHIN
     Route: 048
     Dates: start: 201512
  6. TACROLIMUS [Concomitant]
     Active Substance: TACROLIMUS
     Route: 065
  7. Ertrapenem [Concomitant]
     Route: 042
     Dates: start: 20160307
  8. Bifidobacterium/Lactobacillus/Enterococcus [Concomitant]
     Route: 065
     Dates: start: 20160330

REACTIONS (4)
  - Alanine aminotransferase increased [Recovered/Resolved]
  - Immunosuppressant drug level increased [Recovered/Resolved]
  - Aspartate aminotransferase increased [Recovered/Resolved]
  - Drug interaction [Recovered/Resolved]

NARRATIVE: CASE EVENT DATE: 20160331
